FAERS Safety Report 10130786 (Version 1)
Quarter: 2014Q2

REPORT INFORMATION
  Report Type: Spontaneous
  Country: US (occurrence: None)
  Receive Date: 20140425
  Receipt Date: 20140425
  Transmission Date: 20141212
  Serious: Yes (Other)
  Sender: FDA-Public Use
  Company Number: None

PATIENT
  Age: 44 Year
  Sex: Female
  Weight: 84.37 kg

DRUGS (5)
  1. RITUXAN [Suspect]
     Indication: GRANULOMATOSIS WITH POLYANGIITIS
     Route: 042
     Dates: start: 20140422, end: 20140422
  2. RITUXAN [Suspect]
     Indication: GRANULOMATOSIS WITH POLYANGIITIS
     Route: 042
     Dates: start: 20140422, end: 20140422
  3. SOLUMEDROL [Concomitant]
  4. BENADRYL [Concomitant]
  5. ZOFRAN [Concomitant]

REACTIONS (5)
  - Throat irritation [None]
  - Pharyngeal disorder [None]
  - Flushing [None]
  - Flushing [None]
  - Infusion related reaction [None]
